FAERS Safety Report 8852440 (Version 2)
Quarter: 2012Q4

REPORT INFORMATION
  Report Type: 
  Country: US (occurrence: US)
  Receive Date: 20121022
  Receipt Date: 20121207
  Transmission Date: 20130627
  Serious: Yes (Hospitalization)
  Sender: FDA-Public Use
  Company Number: US-ASTRAZENECA-2012SE79012

PATIENT
  Age: 801 Month
  Sex: Male
  Weight: 60.8 kg

DRUGS (13)
  1. SYMBICORT [Suspect]
     Indication: CHRONIC OBSTRUCTIVE PULMONARY DISEASE
     Dosage: 160/4.5 MCG TWO TIMES A DAY
     Route: 055
     Dates: start: 201201
  2. COMBIVENT [Concomitant]
     Indication: CHRONIC OBSTRUCTIVE PULMONARY DISEASE
     Dosage: AS REQUIRED.
     Route: 055
     Dates: start: 1992
  3. DUONEB [Concomitant]
     Indication: CHRONIC OBSTRUCTIVE PULMONARY DISEASE
     Dosage: TWO TIMES A DAY
     Route: 055
     Dates: start: 1992
  4. ASPIRIN [Concomitant]
     Indication: CORONARY ARTERY DISEASE
     Dosage: DAILY
     Route: 048
     Dates: start: 2002
  5. CLONIPIN [Concomitant]
     Route: 048
     Dates: start: 1992
  6. PRADAXA [Concomitant]
     Route: 048
     Dates: start: 2010
  7. DIGOXIN [Concomitant]
     Indication: CARDIAC DISORDER
     Route: 048
     Dates: start: 2002
  8. LEXAPRO [Concomitant]
     Route: 048
     Dates: start: 1992
  9. FLONASE [Concomitant]
     Dosage: TWO SPRAYS TWO TIMES A DAY
     Route: 045
     Dates: start: 1992
  10. APRESOLINE [Concomitant]
     Route: 048
     Dates: start: 1992
  11. ISORDIL [Concomitant]
     Route: 048
     Dates: start: 2007
  12. LASIX [Concomitant]
     Route: 048
     Dates: start: 2007
  13. LOPRESSOR [Concomitant]
     Route: 048
     Dates: start: 2007

REACTIONS (3)
  - Pneumonia [Recovering/Resolving]
  - Drug dose omission [Unknown]
  - Circumstance or information capable of leading to medication error [Unknown]
